FAERS Safety Report 25917465 (Version 1)
Quarter: 2025Q4

REPORT INFORMATION
  Report Type: Report from Study
  Country: CN (occurrence: CN)
  Receive Date: 20251014
  Receipt Date: 20251014
  Transmission Date: 20260118
  Serious: Yes (Other)
  Sender: ROCHE
  Company Number: CN-ROCHE-3497534

PATIENT
  Age: 82 Year
  Sex: Male
  Weight: 59.9 kg

DRUGS (36)
  1. POLATUZUMAB VEDOTIN [Suspect]
     Active Substance: POLATUZUMAB VEDOTIN
     Indication: Diffuse large B-cell lymphoma
     Route: 042
     Dates: start: 20230906, end: 20230906
  2. POLATUZUMAB VEDOTIN [Suspect]
     Active Substance: POLATUZUMAB VEDOTIN
     Route: 042
     Dates: start: 20231029, end: 20231029
  3. SELINEXOR [Suspect]
     Active Substance: SELINEXOR
     Indication: Diffuse large B-cell lymphoma
     Route: 048
     Dates: start: 20230906, end: 20230927
  4. GEMCITABINE [Suspect]
     Active Substance: GEMCITABINE
     Indication: Diffuse large B-cell lymphoma
     Route: 042
     Dates: start: 20230906, end: 20230906
  5. GEMCITABINE [Suspect]
     Active Substance: GEMCITABINE
     Route: 042
     Dates: start: 20231028, end: 20231028
  6. OXALIPLATIN [Suspect]
     Active Substance: OXALIPLATIN
     Indication: Diffuse large B-cell lymphoma
     Route: 042
     Dates: start: 20230906, end: 20230906
  7. OXALIPLATIN [Suspect]
     Active Substance: OXALIPLATIN
     Route: 042
     Dates: start: 20231028, end: 20231028
  8. TUCIDINOSTAT [Suspect]
     Active Substance: TUCIDINOSTAT
     Indication: Diffuse large B-cell lymphoma
     Dosage: MOST RECENT DOSE DATE: 28-OCT-2023, END DATE: 10-NOV-2023
     Route: 048
  9. VENETOCLAX [Suspect]
     Active Substance: VENETOCLAX
     Indication: Diffuse large B-cell lymphoma
     Dosage: MOST RECENT DOSE DATE: 28-OCT-2023
     Route: 048
  10. ACETAMINOPHEN\ASPIRIN\CAFFEINE [Concomitant]
     Active Substance: ACETAMINOPHEN\ASPIRIN\CAFFEINE
     Dosage: DOSE: 1 TABLET
     Route: 048
     Dates: start: 20230905, end: 20230907
  11. ACETAMINOPHEN\ASPIRIN\CAFFEINE [Concomitant]
     Active Substance: ACETAMINOPHEN\ASPIRIN\CAFFEINE
     Dosage: DOSE: 1 TABLET
     Route: 048
     Dates: start: 20231027, end: 20231029
  12. FEBUXOSTAT [Concomitant]
     Active Substance: FEBUXOSTAT
     Dosage: 10 TABLET
     Route: 048
     Dates: start: 20231107, end: 20231107
  13. POTASSIUM CHLORIDE [Concomitant]
     Active Substance: POTASSIUM CHLORIDE
     Route: 048
     Dates: start: 20231107, end: 20231114
  14. POTASSIUM CHLORIDE [Concomitant]
     Active Substance: POTASSIUM CHLORIDE
     Route: 042
     Dates: start: 20231107, end: 20231107
  15. POTASSIUM CHLORIDE [Concomitant]
     Active Substance: POTASSIUM CHLORIDE
     Route: 042
     Dates: start: 20231107, end: 20231107
  16. OMEPRAZOLE [Concomitant]
     Active Substance: OMEPRAZOLE
     Route: 048
     Dates: start: 20230906, end: 20230907
  17. METHYLPREDNISOLONE SODIUM SUCCINATE [Concomitant]
     Active Substance: METHYLPREDNISOLONE SODIUM SUCCINATE
     Route: 042
     Dates: start: 20230905, end: 20230905
  18. Natupitan Palonosetron [Concomitant]
     Dosage: DOSE: 1 TABLET
     Route: 048
     Dates: start: 20230906, end: 20230906
  19. Natupitan Palonosetron [Concomitant]
     Dosage: DOSE: 1 TABLET
     Route: 048
     Dates: start: 20231004
  20. BERBERINE [Concomitant]
     Active Substance: BERBERINE
     Route: 048
     Dates: start: 20231103, end: 20231103
  21. BERBERINE [Concomitant]
     Active Substance: BERBERINE
     Route: 048
     Dates: start: 20231104, end: 20231106
  22. MONTMORILLONITE [Concomitant]
     Active Substance: MONTMORILLONITE
     Route: 048
     Dates: start: 20231103, end: 20231103
  23. MONTMORILLONITE [Concomitant]
     Active Substance: MONTMORILLONITE
     Route: 048
     Dates: start: 20231104, end: 20231106
  24. CEFACLOR [Concomitant]
     Active Substance: CEFACLOR
     Route: 048
     Dates: start: 20230906
  25. CEFACLOR [Concomitant]
     Active Substance: CEFACLOR
     Route: 048
     Dates: start: 20240208, end: 20240217
  26. VITAMIN B2 [Concomitant]
     Active Substance: RIBOFLAVIN
     Route: 048
     Dates: start: 20240208, end: 20240311
  27. ACYCLOVIR [Concomitant]
     Active Substance: ACYCLOVIR
  28. CEFOPERAZONE [Concomitant]
     Active Substance: CEFOPERAZONE
     Route: 048
     Dates: start: 20230908, end: 20230912
  29. LIDOCAINE HYDROCHLORIDE [Concomitant]
     Active Substance: LIDOCAINE HYDROCHLORIDE
     Route: 061
     Dates: start: 20230908, end: 20230908
  30. LIDOCAINE HYDROCHLORIDE [Concomitant]
     Active Substance: LIDOCAINE HYDROCHLORIDE
     Route: 058
     Dates: start: 20231029, end: 20231030
  31. LIDOCAINE HYDROCHLORIDE [Concomitant]
     Active Substance: LIDOCAINE HYDROCHLORIDE
     Route: 058
     Dates: start: 20230905, end: 20230905
  32. MECAPEGFILGRASTIM [Concomitant]
     Active Substance: MECAPEGFILGRASTIM
     Route: 058
     Dates: start: 20231028, end: 20231030
  33. MECAPEGFILGRASTIM [Concomitant]
     Active Substance: MECAPEGFILGRASTIM
     Route: 058
     Dates: start: 20231002, end: 20231002
  34. CEFPROZIL [Concomitant]
     Active Substance: CEFPROZIL
     Dosage: DOSE: 1 TABLET
     Route: 048
     Dates: start: 20230908
  35. LEUCOGEN [Concomitant]
     Active Substance: LEUCOGEN
     Route: 048
     Dates: start: 20231002
  36. PROMETHAZINE HYDROCHLORIDE [Concomitant]
     Active Substance: PROMETHAZINE HYDROCHLORIDE
     Route: 030
     Dates: start: 20231028, end: 20231029

REACTIONS (10)
  - White blood cell count decreased [Recovered/Resolved]
  - Lymphocyte count decreased [Not Recovered/Not Resolved]
  - Alanine aminotransferase increased [Not Recovered/Not Resolved]
  - Aspartate aminotransferase increased [Not Recovered/Not Resolved]
  - Hyperuricaemia [Not Recovered/Not Resolved]
  - Hypokalaemia [Not Recovered/Not Resolved]
  - Renal impairment [Not Recovered/Not Resolved]
  - Platelet count decreased [Not Recovered/Not Resolved]
  - Anaemia [Not Recovered/Not Resolved]
  - Diarrhoea [Not Recovered/Not Resolved]

NARRATIVE: CASE EVENT DATE: 20230929
